FAERS Safety Report 5633984-4 (Version None)
Quarter: 2008Q1

REPORT INFORMATION
  Report Type: 
  Country: None (occurrence: None)
  Receive Date: 20080221
  Receipt Date: 20080213
  Transmission Date: 20080703
  Serious: Yes (Hospitalization)
  Sender: FDA-Public Use
  Company Number: US-MERCK-0802USA03169

PATIENT
  Age: 73 Year
  Sex: Female

DRUGS (4)
  1. ZOCOR [Suspect]
     Indication: BLOOD CHOLESTEROL INCREASED
     Route: 048
     Dates: start: 20050101, end: 20070101
  2. [THERAPY UNSPECIFIED] [Concomitant]
     Route: 065
  3. BLOOD THINNER (UNSPECIFIED) [Concomitant]
     Route: 065
  4. [THERAPY UNSPECIFIED] [Concomitant]
     Route: 065

REACTIONS (1)
  - CARDIOMEGALY [None]
